FAERS Safety Report 25083355 (Version 1)
Quarter: 2025Q1

REPORT INFORMATION
  Report Type: Spontaneous
  Country: DE (occurrence: DE)
  Receive Date: 20250317
  Receipt Date: 20250317
  Transmission Date: 20250409
  Serious: Yes (Other)
  Sender: TAKEDA
  Company Number: DE-INCYTE CORPORATION-2025IN002575

PATIENT
  Age: 50 Year
  Sex: Male

DRUGS (1)
  1. ICLUSIG [Suspect]
     Active Substance: PONATINIB HYDROCHLORIDE
     Indication: Chronic myeloid leukaemia

REACTIONS (2)
  - Intestinal ischaemia [Recovered/Resolved]
  - Gastrointestinal necrosis [Recovered/Resolved]

NARRATIVE: CASE EVENT DATE: 20240601
